FAERS Safety Report 8325058-9 (Version None)
Quarter: 2012Q2

REPORT INFORMATION
  Report Type: 
  Country: None (occurrence: None)
  Receive Date: 20120501
  Receipt Date: 20120417
  Transmission Date: 20120825
  Serious: Yes (Other)
  Sender: FDA-Public Use
  Company Number: FR-MYLANLABS-2012S1008353

PATIENT
  Age: 66 Year
  Sex: Male

DRUGS (3)
  1. FLUINDIONE [Suspect]
     Route: 065
  2. BISOPROLOL FUMARATE [Suspect]
     Route: 065
  3. AMIODARONE HCL [Suspect]
     Route: 065

REACTIONS (1)
  - DRUG RASH WITH EOSINOPHILIA AND SYSTEMIC SYMPTOMS [None]
